FAERS Safety Report 8490514-X (Version None)
Quarter: 2012Q3

REPORT INFORMATION
  Report Type: 
  Country: None (occurrence: None)
  Receive Date: 20120705
  Receipt Date: 20120625
  Transmission Date: 20120928
  Serious: Yes (Hospitalization)
  Sender: FDA-Public Use
  Company Number: CH-TEVA-345396ISR

PATIENT
  Age: 66 Year
  Sex: Female

DRUGS (3)
  1. PRAVASTATIN [Concomitant]
     Indication: DYSLIPIDAEMIA
     Route: 065
  2. COLOPHOS [Suspect]
     Indication: BOWEL PREPARATION
     Route: 065
     Dates: start: 20100501
  3. LISINOPRIL [Suspect]
     Indication: HYPERTENSION
     Route: 065

REACTIONS (6)
  - ANAEMIA [None]
  - ACUTE PHOSPHATE NEPHROPATHY [None]
  - RENAL FAILURE ACUTE [None]
  - FATIGUE [None]
  - HYPERKALAEMIA [None]
  - PARAESTHESIA [None]
